FAERS Safety Report 6428515-5 (Version None)
Quarter: 2009Q4

REPORT INFORMATION
  Report Type: 
  Country: None (occurrence: None)
  Receive Date: 20091104
  Receipt Date: 20091104
  Transmission Date: 20100525
  Serious: Yes (Hospitalization)
  Sender: FDA-Public Use
  Company Number: None

PATIENT
  Age: 85 Year

DRUGS (2)
  1. MEGESTROL ACETATE [Suspect]
     Indication: CACHEXIA
     Dosage: 800 MG EVERY DAY PO
     Route: 048
     Dates: start: 20090710, end: 20091021
  2. MEGESTROL ACETATE [Suspect]
     Indication: WEIGHT DECREASED
     Dosage: 800 MG EVERY DAY PO
     Route: 048
     Dates: start: 20090710, end: 20091021

REACTIONS (2)
  - DYSPNOEA [None]
  - OEDEMA [None]
